FAERS Safety Report 24816832 (Version 1)
Quarter: 2025Q1

REPORT INFORMATION
  Report Type: Spontaneous
  Country: GB (occurrence: GB)
  Receive Date: 20250107
  Receipt Date: 20250107
  Transmission Date: 20250408
  Serious: Yes (Disabling)
  Sender: BAUSCH AND LOMB
  Company Number: GB-BAUSCH-BL-2025-000071

PATIENT
  Age: 80 Year
  Sex: Male
  Weight: 78 kg

DRUGS (2)
  1. HYDROCORTISONE [Suspect]
     Active Substance: HYDROCORTISONE
     Indication: Product used for unknown indication
     Route: 065
  2. Spikevax JN.1 COVID-19 mRNA Vaccine [Concomitant]
     Indication: Product used for unknown indication
     Route: 030
     Dates: start: 20241004, end: 20241004

REACTIONS (1)
  - Central serous chorioretinopathy [Unknown]
